FAERS Safety Report 18667172 (Version 1)
Quarter: 2020Q4

REPORT INFORMATION
  Report Type: Spontaneous
  Country: FR (occurrence: FR)
  Receive Date: 20201228
  Receipt Date: 20201228
  Transmission Date: 20210114
  Serious: Yes (Hospitalization)
  Sender: FDA-Public Use
  Company Number: FR-SUN PHARMACEUTICAL INDUSTRIES LTD-2020RR-272625

PATIENT
  Age: 82 Year
  Sex: Male

DRUGS (2)
  1. ADVAGRAF 0,5 MG, GELULE A LIBERATION PROLONGEE [Interacting]
     Active Substance: TACROLIMUS
     Indication: RENAL TRANSPLANT
     Dosage: 1 MILLIGRAM, DAILY
     Route: 048
     Dates: start: 2015, end: 20200703
  2. CLARITHROMYCINE [Suspect]
     Active Substance: CLARITHROMYCIN
     Indication: HELICOBACTER INFECTION
     Dosage: 1 MILLIGRAM, DAILY
     Route: 048
     Dates: start: 20200611, end: 20200625

REACTIONS (4)
  - Immunosuppressant drug level increased [Recovered/Resolved]
  - Hepatitis [Recovered/Resolved]
  - Product prescribing error [Recovered/Resolved]
  - Vomiting [Recovered/Resolved]

NARRATIVE: CASE EVENT DATE: 202006
